FAERS Safety Report 23833097 (Version 2)
Quarter: 2024Q3

REPORT INFORMATION
  Report Type: Report from Study
  Country: IT (occurrence: IT)
  Receive Date: 20240508
  Receipt Date: 20240726
  Transmission Date: 20241017
  Serious: Yes (Hospitalization)
  Sender: MYLAN
  Company Number: IT-ORG100013321-2024000074

PATIENT
  Age: 4 Year
  Sex: Male

DRUGS (2)
  1. BUPRENORPHINE [Suspect]
     Active Substance: BUPRENORPHINE
     Indication: Product used for unknown indication
     Dosage: UNK
     Route: 065
  2. NALOXONE [Concomitant]
     Active Substance: NALOXONE
     Indication: Product used for unknown indication
     Dosage: UNK
     Route: 065

REACTIONS (7)
  - Toxicity to various agents [Recovered/Resolved]
  - Confusional state [Recovering/Resolving]
  - Somnolence [Recovering/Resolving]
  - Miosis [Recovering/Resolving]
  - Agitation [Recovering/Resolving]
  - Bladder dilatation [Recovering/Resolving]
  - Mental status changes [Recovering/Resolving]
